FAERS Safety Report 9129584 (Version 5)
Quarter: 2013Q1

REPORT INFORMATION
  Report Type: Spontaneous
  Country: ES (occurrence: ES)
  Receive Date: 20130228
  Receipt Date: 20130328
  Transmission Date: 20140127
  Serious: Yes (Life-Threatening, Hospitalization)
  Sender: FDA-Public Use
  Company Number: ES-JNJFOC-20130213724

PATIENT
  Age: 64 Year
  Sex: Male

DRUGS (5)
  1. REMICADE [Suspect]
     Indication: ANKYLOSING SPONDYLITIS
     Route: 042
     Dates: start: 2001, end: 20121220
  2. INACID [Suspect]
     Indication: ANKYLOSING SPONDYLITIS
     Route: 065
  3. ANTIBIOTIC (UNSPECIFIED) [Suspect]
     Indication: PRODUCT USED FOR UNKNOWN INDICATION
     Route: 065
     Dates: start: 201302
  4. LIPID LOWERING THERAPY [Concomitant]
     Indication: HYPERLIPIDAEMIA
     Route: 065
  5. ANTI HYPERTENSIVE THERAPY, NOS [Concomitant]
     Indication: HYPERTENSION
     Route: 065

REACTIONS (8)
  - Tracheal haemorrhage [Recovered/Resolved]
  - Granuloma [Unknown]
  - Aspiration bronchial [Not Recovered/Not Resolved]
  - Hypothyroidism [Recovering/Resolving]
  - Hyponatraemia [Recovered/Resolved]
  - Bronchospasm [Recovering/Resolving]
  - Thrombocytopenia [Recovered/Resolved]
  - Pneumonia aspiration [Recovering/Resolving]
